FAERS Safety Report 5689644-7 (Version None)
Quarter: 2008Q1

REPORT INFORMATION
  Report Type: 
  Country: None (occurrence: None)
  Receive Date: 20080331
  Receipt Date: 20080305
  Transmission Date: 20080703
  Serious: No
  Sender: FDA-Public Use
  Company Number: US-BOEHRINGER INGELHEIM GMBH, GERMANY-2008-BP-01983BP

PATIENT
  Age: 73 Year
  Sex: Female
  Weight: 59 kg

DRUGS (5)
  1. SPIRIVA [Suspect]
     Indication: CHRONIC OBSTRUCTIVE PULMONARY DISEASE
     Route: 055
     Dates: start: 20060110
  2. LOVASTATIN [Concomitant]
  3. ADVAIR HFA [Concomitant]
     Dates: start: 20060110
  4. NIFEDIPINE [Concomitant]
  5. FOSAMAX PLUS D [Concomitant]

REACTIONS (2)
  - CATARACT [None]
  - MACULAR DEGENERATION [None]
